FAERS Safety Report 12391624 (Version 1)
Quarter: 2016Q2

REPORT INFORMATION
  Report Type: Spontaneous
  Country: US (occurrence: US)
  Receive Date: 20160521
  Receipt Date: 20160521
  Transmission Date: 20160815
  Serious: No
  Sender: FDA-Public Use
  Company Number: US-009507513-1605USA008661

PATIENT
  Age: 23 Year
  Sex: Female
  Weight: 144.67 kg

DRUGS (1)
  1. NEXPLANON [Suspect]
     Active Substance: ETONOGESTREL
     Indication: CONTRACEPTION
     Dosage: UNK
     Route: 059
     Dates: start: 201508

REACTIONS (3)
  - Device breakage [Not Recovered/Not Resolved]
  - Headache [Unknown]
  - Mood altered [Unknown]

NARRATIVE: CASE EVENT DATE: 20160425
